FAERS Safety Report 23087431 (Version 1)
Quarter: 2023Q4

REPORT INFORMATION
  Report Type: Spontaneous
  Country: FR (occurrence: None)
  Receive Date: 20231020
  Receipt Date: 20231020
  Transmission Date: 20240109
  Serious: Yes (Hospitalization)
  Sender: FDA-Public Use
  Company Number: FR-Orion Corporation ORION PHARMA-TREX2023-0231

PATIENT
  Age: 55 Year
  Sex: Female
  Weight: 71 kg

DRUGS (8)
  1. METHOTREXATE [Suspect]
     Active Substance: METHOTREXATE
     Indication: Rheumatoid arthritis
     Dates: start: 2012, end: 202202
  2. BROMAZEPAM [Concomitant]
     Active Substance: BROMAZEPAM
     Dosage: STRENGTH: 6 MG
  3. EFFEXOR [Concomitant]
     Active Substance: VENLAFAXINE HYDROCHLORIDE
     Dosage: STRENGTH: 37.5 MG
  4. RALOXIFENE [Concomitant]
     Active Substance: RALOXIFENE
  5. PREDNISONE [Concomitant]
     Active Substance: PREDNISONE
     Indication: Rheumatoid arthritis
     Dates: start: 2011
  6. FOLIC ACID [Concomitant]
     Active Substance: FOLIC ACID
  7. CALCIUM CARBONATE [Concomitant]
     Active Substance: CALCIUM CARBONATE
  8. KETOPROFEN [Concomitant]
     Active Substance: KETOPROFEN

REACTIONS (1)
  - Bone fissure [Recovering/Resolving]

NARRATIVE: CASE EVENT DATE: 20200211
